FAERS Safety Report 10159813 (Version 1)
Quarter: 2014Q2

REPORT INFORMATION
  Report Type: Spontaneous
  Country: US (occurrence: US)
  Receive Date: 20140508
  Receipt Date: 20140508
  Transmission Date: 20141212
  Serious: No
  Sender: FDA-Public Use
  Company Number: US-GLAXOSMITHKLINE-A1032753A

PATIENT
  Age: 56 Year
  Sex: Female

DRUGS (10)
  1. TYKERB [Suspect]
     Indication: BREAST CANCER
     Dosage: 1500MG PER DAY
     Route: 048
     Dates: start: 20130411
  2. FEMARA [Concomitant]
  3. ZOLOFT [Concomitant]
  4. DEXAMETHASONE [Concomitant]
  5. XGEVA [Concomitant]
  6. XANAX [Concomitant]
  7. CALTRATE [Concomitant]
  8. BENADRYL [Concomitant]
  9. PRILOSEC [Concomitant]
  10. ALLEGRA [Concomitant]

REACTIONS (2)
  - Decreased appetite [Not Recovered/Not Resolved]
  - Diarrhoea [Not Recovered/Not Resolved]
